FAERS Safety Report 12176382 (Version 2)
Quarter: 2016Q1

REPORT INFORMATION
  Report Type: Report from Study
  Country: CN (occurrence: CN)
  Receive Date: 20160315
  Receipt Date: 20160318
  Transmission Date: 20160526
  Serious: Yes (Hospitalization)
  Sender: FDA-Public Use
  Company Number: CN-ROCHE-1711980

PATIENT
  Age: 61 Year
  Sex: Male
  Weight: 75 kg

DRUGS (1)
  1. AVASTIN [Suspect]
     Active Substance: BEVACIZUMAB
     Indication: COLON CANCER
     Route: 041
     Dates: start: 20150729, end: 20160217

REACTIONS (10)
  - Nerve compression [Unknown]
  - Herpes zoster [Recovering/Resolving]
  - Nasopharyngitis [Recovered/Resolved]
  - Hypersensitivity [Recovering/Resolving]
  - Pyrexia [Recovered/Resolved]
  - Rash pustular [Recovering/Resolving]
  - Grimacing [Unknown]
  - Purulence [Unknown]
  - Erythema [Unknown]
  - Asthenia [Unknown]

NARRATIVE: CASE EVENT DATE: 20160210
